FAERS Safety Report 17147723 (Version 2)
Quarter: 2019Q4

REPORT INFORMATION
  Report Type: Spontaneous
  Country: JP (occurrence: JP)
  Receive Date: 20191212
  Receipt Date: 20191224
  Transmission Date: 20200122
  Serious: Yes (Hospitalization, Other)
  Sender: FDA-Public Use
  Company Number: JP-ELI_LILLY_AND_COMPANY-JP201912006248

PATIENT
  Age: 65 Year
  Sex: Male

DRUGS (1)
  1. ERBITUX [Suspect]
     Active Substance: CETUXIMAB
     Indication: TONGUE NEOPLASM MALIGNANT STAGE UNSPECIFIED
     Dosage: 250 MG/M2, WEEKLY (1/W)
     Route: 041
     Dates: start: 20190826, end: 20191007

REACTIONS (4)
  - Mucosal inflammation [Not Recovered/Not Resolved]
  - Malnutrition [Unknown]
  - Vascular device infection [Unknown]
  - Sepsis [Unknown]

NARRATIVE: CASE EVENT DATE: 2019
